FAERS Safety Report 5447427-7 (Version None)
Quarter: 2007Q3

REPORT INFORMATION
  Report Type: 
  Country: None (occurrence: None)
  Receive Date: 20070905
  Receipt Date: 20070821
  Transmission Date: 20080115
  Serious: Yes (Other)
  Sender: FDA-Public Use
  Company Number: OSCN-UK-0708S-0335

PATIENT
  Age: 39 Year
  Sex: Female
  Weight: 54 kg

DRUGS (2)
  1. OMNISCAN [Suspect]
     Indication: BREAST CANCER
     Dosage: 18 ML, SINGLE DOSE, I.V.
     Route: 042
     Dates: start: 20070817, end: 20070817
  2. OMNISCAN [Suspect]

REACTIONS (4)
  - DIZZINESS [None]
  - FALL [None]
  - MALAISE [None]
  - MUSCLE TWITCHING [None]
